FAERS Safety Report 10574472 (Version 2)
Quarter: 2015Q2

REPORT INFORMATION
  Report Type: Spontaneous
  Country: BR (occurrence: BR)
  Receive Date: 20141110
  Receipt Date: 20150514
  Transmission Date: 20150821
  Serious: Yes (Hospitalization, Other)
  Sender: FDA-Public Use
  Company Number: BR-GLAXOSMITHKLINE-BR2014GSK017917

PATIENT
  Sex: Male
  Weight: 88 kg

DRUGS (1)
  1. COMBODART [Suspect]
     Active Substance: DUTASTERIDE\TAMSULOSIN
     Indication: PROSTATIC DISORDER
     Dosage: 1 UNK, QD
     Route: 048

REACTIONS (7)
  - Gastrointestinal carcinoma [Recovered/Resolved]
  - Tumour excision [Recovered/Resolved]
  - Pelvic neoplasm [Unknown]
  - Respiratory disorder [Unknown]
  - Dyspnoea [Recovered/Resolved]
  - Neoplasm malignant [Recovered/Resolved]
  - Lung neoplasm malignant [Unknown]
